FAERS Safety Report 6663800-3 (Version None)
Quarter: 2010Q2

REPORT INFORMATION
  Report Type: 
  Country: None (occurrence: None)
  Receive Date: 20100401
  Receipt Date: 20100318
  Transmission Date: 20101027
  Serious: Yes (Other)
  Sender: FDA-Public Use
  Company Number: CA-GENENTECH-279458

PATIENT
  Sex: Female
  Weight: 88 kg

DRUGS (6)
  1. XOLAIR [Suspect]
     Indication: ASTHMA
     Dosage: 150 MG, 1/MONTH
     Route: 058
     Dates: start: 20080121
  2. XOLAIR [Suspect]
     Dosage: 150 MG, 1/MONTH
     Route: 058
     Dates: start: 20091201
  3. XOLAIR [Suspect]
     Dosage: 150 MG, 1/MONTH
     Route: 058
     Dates: start: 20100318
  4. ADVIL [Concomitant]
     Indication: DRUG USE FOR UNKNOWN INDICATION
  5. SINGULAIR [Concomitant]
  6. ANTIHISTAMINE NOS [Concomitant]
     Indication: HYPERSENSITIVITY

REACTIONS (6)
  - HEART RATE INCREASED [None]
  - HYPERSENSITIVITY [None]
  - INFLUENZA [None]
  - PNEUMONIA [None]
  - RESPIRATORY DISORDER [None]
  - WHEEZING [None]
